FAERS Safety Report 8785053 (Version 1)
Quarter: 2012Q4

REPORT INFORMATION
  Report Type: 
  Country: US (occurrence: US)
  Receive Date: 20120914
  Receipt Date: 20120914
  Transmission Date: 20130627
  Serious: Yes (Hospitalization)
  Sender: FDA-Public Use
  Company Number: US-ASTRAZENECA-2012SE69855

PATIENT
  Age: 93 Year
  Sex: Female

DRUGS (2)
  1. SYMBICORT [Suspect]
     Indication: ASTHMA
     Dosage: 160 mcg Two times a day
     Route: 055
  2. VARIOUS INHALERS [Concomitant]
     Dates: start: 1992

REACTIONS (1)
  - Pneumonia [Unknown]
